FAERS Safety Report 13007036 (Version 1)
Quarter: 2016Q4

REPORT INFORMATION
  Report Type: Spontaneous
  Country: IL (occurrence: IL)
  Receive Date: 20161207
  Receipt Date: 20161207
  Transmission Date: 20170207
  Serious: Yes (Other)
  Sender: FDA-Public Use
  Company Number: IL-SA-2016SA221461

PATIENT
  Sex: Male

DRUGS (1)
  1. LYXUMIA [Suspect]
     Active Substance: LIXISENATIDE
     Route: 065
     Dates: start: 201504, end: 201510

REACTIONS (4)
  - Weight decreased [Unknown]
  - Dyspepsia [Unknown]
  - Gastritis [Unknown]
  - Nausea [Unknown]
